FAERS Safety Report 13617483 (Version 1)
Quarter: 2017Q2

REPORT INFORMATION
  Report Type: Spontaneous
  Country: US (occurrence: US)
  Receive Date: 20170606
  Receipt Date: 20170606
  Transmission Date: 20170830
  Serious: No
  Sender: FDA-Public Use
  Company Number: US-SA-2016SA231006

PATIENT
  Age: 62 Year
  Sex: Male

DRUGS (3)
  1. SOLOSTAR [Concomitant]
     Active Substance: DEVICE
     Dates: start: 200801
  2. NOVOLOG [Concomitant]
     Active Substance: INSULIN ASPART
     Dosage: TAKEN AS MUCH AS 30 UNITS. DOSE:20 UNIT(S)
  3. LANTUS SOLOSTAR [Suspect]
     Active Substance: INSULIN GLARGINE
     Indication: LATENT AUTOIMMUNE DIABETES IN ADULTS
     Dosage: DOSE:24 UNIT(S)
     Route: 065
     Dates: start: 200801

REACTIONS (3)
  - Furuncle [Recovered/Resolved]
  - Product use issue [Unknown]
  - Blood glucose increased [Unknown]
